FAERS Safety Report 13175229 (Version 1)
Quarter: 2017Q1

REPORT INFORMATION
  Report Type: Spontaneous
  Country: US (occurrence: US)
  Receive Date: 20170131
  Receipt Date: 20170131
  Transmission Date: 20170428
  Serious: Yes (Other)
  Sender: FDA-Public Use
  Company Number: None

PATIENT
  Age: 70 Year
  Sex: Female
  Weight: 103.7 kg

DRUGS (2)
  1. XYLOCAINE [Suspect]
     Active Substance: LIDOCAINE HYDROCHLORIDE
     Route: 030
     Dates: start: 20170131
  2. CEFTRIAXONE 1GM WG CRITICAL CARE, LLC [Suspect]
     Active Substance: CEFTRIAXONE
     Indication: PNEUMONIA
     Route: 030
     Dates: start: 20170131

REACTIONS (7)
  - Dyspnoea [None]
  - Erythema [None]
  - Pruritus [None]
  - Hypotension [None]
  - Pneumonia [None]
  - Flushing [None]
  - Tachycardia [None]

NARRATIVE: CASE EVENT DATE: 20170131
